FAERS Safety Report 5641196-3 (Version None)
Quarter: 2008Q1

REPORT INFORMATION
  Report Type: 
  Country: None (occurrence: None)
  Receive Date: 20080227
  Receipt Date: 20070309
  Transmission Date: 20080703
  Serious: No
  Sender: FDA-Public Use
  Company Number: A0642365A

PATIENT
  Sex: Male

DRUGS (2)
  1. NICORETTE [Suspect]
  2. NICORETTE [Suspect]

REACTIONS (2)
  - PHARYNGOLARYNGEAL PAIN [None]
  - SINUSITIS [None]
